FAERS Safety Report 9765177 (Version 1)
Quarter: 2013Q4

REPORT INFORMATION
  Report Type: Spontaneous
  Country: US (occurrence: US)
  Receive Date: 20131217
  Receipt Date: 20131217
  Transmission Date: 20140711
  Serious: No
  Sender: FDA-Public Use
  Company Number: US-GLAXOSMITHKLINE-A1014413A

PATIENT
  Age: 77 Year
  Sex: Male

DRUGS (2)
  1. SORIATANE [Suspect]
     Indication: SKIN CANCER
     Dates: start: 20130222
  2. BEER [Concomitant]

REACTIONS (7)
  - Rash [Unknown]
  - Dry mouth [Unknown]
  - Chapped lips [Unknown]
  - Dry eye [Unknown]
  - Arthralgia [Unknown]
  - Limb discomfort [Unknown]
  - Arthritis [Unknown]
